FAERS Safety Report 12214493 (Version 10)
Quarter: 2016Q4

REPORT INFORMATION
  Report Type: Report from Study
  Country: JP (occurrence: JP)
  Receive Date: 20160328
  Receipt Date: 20161116
  Transmission Date: 20170207
  Serious: Yes (Hospitalization, Other)
  Sender: FDA-Public Use
  Company Number: JP-TEVA-629774ISR

PATIENT
  Age: 30 Year
  Sex: Female
  Weight: 54 kg

DRUGS (16)
  1. IMUSERA [Suspect]
     Active Substance: FINGOLIMOD HYDROCHLORIDE
     Dosage: ONGOING
     Route: 048
     Dates: start: 20160523
  2. METHYLPREDNISOLONE SODIUM SUCCINATE. [Suspect]
     Active Substance: METHYLPREDNISOLONE SODIUM SUCCINATE
     Dosage: 5 CYCLES IN TOTAL
     Route: 042
     Dates: start: 20160324, end: 20160326
  3. SOL-MELCORT [Suspect]
     Active Substance: METHYLPREDNISOLONE SODIUM SUCCINATE
     Dosage: 2 CYCLES IN TOTAL
     Route: 042
     Dates: start: 20150108, end: 20150122
  4. METHYCOBAL [Concomitant]
     Active Substance: METHYLCOBALAMIN
     Dosage: ONGOING
     Route: 065
     Dates: start: 20160329
  5. FAMOTIDINE. [Concomitant]
     Active Substance: FAMOTIDINE
     Route: 065
     Dates: start: 20160318, end: 20160706
  6. GLATIRAMER ACETATE. [Suspect]
     Active Substance: GLATIRAMER ACETATE
     Indication: RELAPSING-REMITTING MULTIPLE SCLEROSIS
     Dosage: 20 MILLIGRAM/MILLILITERS DAILY;
     Route: 058
     Dates: start: 20160118, end: 20160514
  7. IMUSERA [Suspect]
     Active Substance: FINGOLIMOD HYDROCHLORIDE
     Indication: RELAPSING-REMITTING MULTIPLE SCLEROSIS
     Route: 048
     Dates: start: 201302, end: 201510
  8. METHYLPREDNISOLONE SODIUM SUCCINATE. [Suspect]
     Active Substance: METHYLPREDNISOLONE SODIUM SUCCINATE
     Dosage: 5 CYCLES IN TOTAL
     Route: 042
     Dates: start: 20160425, end: 20160427
  9. METHYLPREDNISOLONE SODIUM SUCCINATE. [Suspect]
     Active Substance: METHYLPREDNISOLONE SODIUM SUCCINATE
     Indication: RELAPSING-REMITTING MULTIPLE SCLEROSIS
     Dosage: 5 CYCLES IN TOTAL
     Route: 042
     Dates: start: 20160318, end: 20160320
  10. MAGNESIUM OXIDE. [Concomitant]
     Active Substance: MAGNESIUM OXIDE
     Dosage: ONGOING
     Route: 065
     Dates: start: 20160329
  11. METHYLPREDNISOLONE SODIUM SUCCINATE. [Suspect]
     Active Substance: METHYLPREDNISOLONE SODIUM SUCCINATE
     Dosage: 5 CYCLES IN TOTAL
     Route: 042
     Dates: start: 20160331, end: 20160402
  12. METHYLPREDNISOLONE SODIUM SUCCINATE. [Suspect]
     Active Substance: METHYLPREDNISOLONE SODIUM SUCCINATE
     Dosage: 5 CYCLES IN TOTAL
     Route: 042
     Dates: start: 20160501, end: 20160503
  13. SOL-MELCORT [Suspect]
     Active Substance: METHYLPREDNISOLONE SODIUM SUCCINATE
     Indication: RELAPSING-REMITTING MULTIPLE SCLEROSIS
     Dosage: 2 CYCLES IN TOTAL
     Route: 042
     Dates: start: 20151202, end: 20151211
  14. VESICARE [Suspect]
     Active Substance: SOLIFENACIN SUCCINATE
     Dosage: 5 MILLIGRAM DAILY; ONGOING
     Dates: start: 20160501
  15. CLOTIAZEPAM [Suspect]
     Active Substance: CLOTIAZEPAM
     Dosage: 10 MILLIGRAM DAILY; ONGOING
     Route: 065
     Dates: start: 20160506
  16. ALFACALCIDOL [Concomitant]
     Active Substance: ALFACALCIDOL
     Route: 065
     Dates: start: 20160326, end: 20160706

REACTIONS (11)
  - Multiple sclerosis relapse [Recovered/Resolved]
  - Multiple sclerosis relapse [Unknown]
  - Depression [Recovering/Resolving]
  - Threatened labour [Recovering/Resolving]
  - Exposure during pregnancy [Unknown]
  - Hypoaesthesia [Recovering/Resolving]
  - Multiple sclerosis relapse [Recovering/Resolving]
  - Hypoaesthesia [Unknown]
  - Induced labour [Unknown]
  - Hypoaesthesia [Recovering/Resolving]
  - Hypertonic bladder [Recovering/Resolving]

NARRATIVE: CASE EVENT DATE: 20160118
